FAERS Safety Report 4792899-4 (Version None)
Quarter: 2005Q4

REPORT INFORMATION
  Report Type: 
  Country: None (occurrence: None)
  Receive Date: 20051010
  Receipt Date: 20050928
  Transmission Date: 20060501
  Serious: Yes (Hospitalization)
  Sender: FDA-Public Use
  Company Number: AU-ROCHE-419125

PATIENT
  Age: 21 Year
  Sex: Male

DRUGS (2)
  1. DACLIZUMAB [Suspect]
     Indication: ASTHMA
     Route: 058
     Dates: start: 20050720, end: 20050720
  2. DACLIZUMAB [Suspect]
     Dosage: 3 DOSES.
     Route: 058
     Dates: start: 20050803, end: 20050831

REACTIONS (10)
  - HEPATITIS [None]
  - INFLUENZA LIKE ILLNESS [None]
  - INJECTION SITE PAIN [None]
  - INTERNATIONAL NORMALISED RATIO INCREASED [None]
  - MYOCARDITIS [None]
  - PERICARDITIS [None]
  - RESPIRATORY TRACT INFECTION VIRAL [None]
  - SYNCOPE VASOVAGAL [None]
  - THROMBOCYTOPENIA [None]
  - VENTRICULAR DYSFUNCTION [None]
